FAERS Safety Report 6701205-7 (Version None)
Quarter: 2010Q2

REPORT INFORMATION
  Report Type: 
  Country: None (occurrence: None)
  Receive Date: 20100428
  Receipt Date: 20100428
  Transmission Date: 20101027
  Serious: No
  Sender: FDA-Public Use
  Company Number: None

PATIENT
  Sex: Female

DRUGS (2)
  1. BUPROPION HCL [Suspect]
  2. BUPROPION HCL [Suspect]

REACTIONS (2)
  - DRUG LABEL CONFUSION [None]
  - MEDICATION ERROR [None]
